FAERS Safety Report 17412142 (Version 17)
Quarter: 2022Q3

REPORT INFORMATION
  Report Type: Report from Study
  Country: JP (occurrence: JP)
  Receive Date: 20200213
  Receipt Date: 20220829
  Transmission Date: 20221026
  Serious: Yes (Hospitalization, Other)
  Sender: FDA-Public Use
  Company Number: JP-ONO-2020JP003114

PATIENT
  Age: 61 Year
  Sex: Male
  Weight: 75.5 kg

DRUGS (30)
  1. ETELCALCETIDE [Suspect]
     Active Substance: ETELCALCETIDE
     Indication: Hyperparathyroidism secondary
     Dosage: 2.5 MG, Q56H
     Route: 010
     Dates: start: 20190604, end: 20200303
  2. ETELCALCETIDE [Suspect]
     Active Substance: ETELCALCETIDE
     Dosage: 2.5 MG, Q84H
     Route: 010
     Dates: start: 20200310, end: 20200515
  3. ETELCALCETIDE [Suspect]
     Active Substance: ETELCALCETIDE
     Dosage: 2.5 MG, Q56H
     Route: 010
     Dates: start: 20200516
  4. EPOETIN ALFA [Concomitant]
     Active Substance: ERYTHROPOIETIN
     Dosage: 9000 DOSAGE FORM, QWK
     Route: 065
     Dates: end: 20190508
  5. EPOETIN ALFA [Concomitant]
     Active Substance: ERYTHROPOIETIN
     Dosage: 1500 DOSAGE FORM, QWK
     Route: 065
     Dates: start: 20190511, end: 20190816
  6. EPOETIN ALFA [Concomitant]
     Active Substance: ERYTHROPOIETIN
     Dosage: 2250 DOSAGE FORM, QWK
     Route: 065
     Dates: start: 20190820, end: 20191023
  7. EPOETIN ALFA [Concomitant]
     Active Substance: ERYTHROPOIETIN
     Dosage: 1500 DOSAGE FORM, QWK
     Route: 065
     Dates: start: 20191026, end: 20191203
  8. EPOETIN ALFA [Concomitant]
     Active Substance: ERYTHROPOIETIN
     Dosage: 750 DOSAGE FORM, QWK
     Route: 065
     Dates: start: 20191214, end: 20200409
  9. EPOETIN ALFA [Concomitant]
     Active Substance: ERYTHROPOIETIN
     Dosage: 2250 DOSAGE FORM, QWK
     Route: 065
     Dates: start: 20200411, end: 20211117
  10. EPOETIN ALFA [Concomitant]
     Active Substance: ERYTHROPOIETIN
     Dosage: 750 DOSAGE FORM, QWK
     Route: 065
     Dates: start: 20211118, end: 20211214
  11. EPOETIN ALFA [Concomitant]
     Active Substance: ERYTHROPOIETIN
     Dosage: 3000 DOSAGE FORM, QWK
     Route: 065
     Dates: start: 20211118, end: 20211214
  12. EPOETIN ALFA [Concomitant]
     Active Substance: ERYTHROPOIETIN
     Dosage: 9000 DOSAGE FORM, QWK
     Route: 065
     Dates: start: 20211216
  13. DARBEPOETIN ALFA [Concomitant]
     Active Substance: DARBEPOETIN ALFA
     Dosage: 40 MICROGRAM, QWK
     Route: 065
     Dates: start: 20220421
  14. OXAROL MARUHO [Concomitant]
     Dosage: 5 MICROGRAM
     Route: 065
     Dates: end: 20190209
  15. OXAROL MARUHO [Concomitant]
     Dosage: 5 MICROGRAM, Q56H
     Route: 065
     Dates: start: 20190212, end: 20190411
  16. OXAROL MARUHO [Concomitant]
     Dosage: 10 MICROGRAM, Q84H
     Route: 065
     Dates: start: 20190413, end: 20190514
  17. OXAROL MARUHO [Concomitant]
     Dosage: 10 MICROGRAM, Q56H
     Route: 065
     Dates: start: 20190516, end: 20190708
  18. OXAROL MARUHO [Concomitant]
     Dosage: 10 MICROGRAM, Q84H
     Route: 065
     Dates: start: 20190709, end: 20191111
  19. OXAROL MARUHO [Concomitant]
     Dosage: 5 MICROGRAM, Q56H
     Route: 065
     Dates: start: 20191112, end: 20200306
  20. OXAROL MARUHO [Concomitant]
     Dosage: 5 MICROGRAM, Q84H
     Route: 065
     Dates: start: 20200310, end: 20200515
  21. OXAROL MARUHO [Concomitant]
     Dosage: 5 MICROGRAM, Q84H
     Route: 065
     Dates: start: 20200516, end: 20210610
  22. OXAROL MARUHO [Concomitant]
     Dosage: 2.5 MICROGRAM, QWK
     Route: 065
     Dates: start: 20200516, end: 20210610
  23. OXAROL MARUHO [Concomitant]
     Dosage: 5 MICROGRAM,  Q56H
     Route: 065
     Dates: start: 20210612, end: 20220310
  24. OXAROL MARUHO [Concomitant]
     Dosage: 5 MICROGRAM, Q84H
     Route: 065
     Dates: start: 20220312
  25. OXAROL MARUHO [Concomitant]
     Dosage: 10 MICROGRAM, QWK
     Route: 065
     Dates: start: 20220312
  26. FULSTAN [Concomitant]
     Dosage: 0.3 MICROGRAM, QD
     Route: 065
  27. FOSRENOL [Concomitant]
     Active Substance: LANTHANUM CARBONATE
     Dosage: 1500 MG, EVERYDAY
     Route: 048
     Dates: end: 20200723
  28. FOSRENOL [Concomitant]
     Active Substance: LANTHANUM CARBONATE
     Dosage: 1500 MG, EVERYDAY
     Route: 048
     Dates: start: 20201027
  29. SUCROFERRIC OXYHYDROXIDE [Concomitant]
     Active Substance: SUCROFERRIC OXYHYDROXIDE
     Dosage: 3000 MG, EVERYDAY
     Route: 048
     Dates: end: 20200723
  30. SUCROFERRIC OXYHYDROXIDE [Concomitant]
     Active Substance: SUCROFERRIC OXYHYDROXIDE
     Dosage: 3000 MILLIGRAM, QD
     Route: 048
     Dates: start: 20201027

REACTIONS (6)
  - Shunt occlusion [Recovered/Resolved]
  - Heat illness [Recovered/Resolved]
  - Shunt occlusion [Recovered/Resolved]
  - Extravasation [Recovered/Resolved]
  - Extravasation [Recovered/Resolved]
  - Extravasation [Recovered/Resolved]

NARRATIVE: CASE EVENT DATE: 20190801
